FAERS Safety Report 18627456 (Version 1)
Quarter: 2020Q4

REPORT INFORMATION
  Report Type: Spontaneous
  Country: US (occurrence: US)
  Receive Date: 20201216
  Receipt Date: 20201216
  Transmission Date: 20210114
  Serious: Yes (Other)
  Sender: FDA-Public Use
  Company Number: None

PATIENT
  Age: 25 Year
  Sex: Female
  Weight: 125.55 kg

DRUGS (1)
  1. DEPO-PROVERA [Suspect]
     Active Substance: MEDROXYPROGESTERONE ACETATE
     Indication: CONTRACEPTION
     Dosage: ?          OTHER FREQUENCY:EVERY 11-13 WEEKS;?
     Route: 030

REACTIONS (9)
  - Pyrexia [None]
  - Headache [None]
  - Abdominal pain [None]
  - Pain [None]
  - Injection site pain [None]
  - Malaise [None]
  - Dizziness [None]
  - Feeling abnormal [None]
  - Chills [None]

NARRATIVE: CASE EVENT DATE: 20201211
